FAERS Safety Report 7347008-4 (Version None)
Quarter: 2011Q1

REPORT INFORMATION
  Report Type: 
  Country: None (occurrence: None)
  Receive Date: 20110311
  Receipt Date: 20110228
  Transmission Date: 20110831
  Serious: Yes (Other)
  Sender: FDA-Public Use
  Company Number: PHFR2007GB02734

PATIENT
  Sex: Male

DRUGS (10)
  1. CLOZARIL [Suspect]
     Dosage: 575 MG, QD
     Route: 048
  2. OMEPRAZOLE [Concomitant]
     Dosage: 20 MG, QD
  3. CLOZARIL [Suspect]
     Indication: SCHIZOPHRENIA
     Dosage: 600 MG, QD
     Route: 048
     Dates: start: 19980521
  4. LITHIUM CARBONATE [Concomitant]
     Dosage: 1 G, QD
  5. VALPROATE SODIUM [Concomitant]
     Dosage: 1 G, BID
  6. ATROPINE [Concomitant]
     Dosage: 1 DF, QD
  7. CLOZARIL [Suspect]
     Dosage: 550 MG, QD
     Route: 048
     Dates: start: 20090501
  8. PIRENZEPINE [Concomitant]
     Dosage: 50 MG, TID
  9. CLOZARIL [Suspect]
     Dosage: 675 MG, QD
     Route: 048
  10. THYROXINE [Concomitant]
     Dosage: 50 UG, QD

REACTIONS (7)
  - HEPATITIS C [None]
  - MYOCLONUS [None]
  - GASTROINTESTINAL HAEMORRHAGE [None]
  - SKIN STRIAE [None]
  - PSYCHOTIC DISORDER [None]
  - HEPATIC CIRRHOSIS [None]
  - ANTIPSYCHOTIC DRUG LEVEL INCREASED [None]
